FAERS Safety Report 22266556 (Version 1)
Quarter: 2023Q2

REPORT INFORMATION
  Report Type: Spontaneous
  Country: US (occurrence: US)
  Receive Date: 20230428
  Receipt Date: 20230428
  Transmission Date: 20230722
  Serious: Yes (Other)
  Sender: FDA-Public Use
  Company Number: US-OTSUKA-2023_010863

PATIENT
  Age: 20 Year
  Sex: Male

DRUGS (14)
  1. BUSULFAN [Suspect]
     Active Substance: BUSULFAN
     Indication: Bone marrow conditioning regimen
     Dosage: 185.4 MG
     Route: 042
  2. BUSULFAN [Suspect]
     Active Substance: BUSULFAN
     Indication: Stem cell transplant
     Dosage: 224 MG
     Route: 042
  3. BUSULFAN [Suspect]
     Active Substance: BUSULFAN
     Indication: Sickle cell anaemia
  4. FLUDARABINE [Suspect]
     Active Substance: FLUDARABINE PHOSPHATE
     Indication: Bone marrow conditioning regimen
     Dosage: 40 MG/M2, OVER 60 MIN ON DAYS -6 TO -3
     Route: 042
  5. FLUDARABINE [Suspect]
     Active Substance: FLUDARABINE PHOSPHATE
     Indication: Stem cell transplant
  6. FLUDARABINE [Suspect]
     Active Substance: FLUDARABINE PHOSPHATE
     Indication: Sickle cell anaemia
  7. ANTI-THYMOCYTE GLOBULIN (RABBIT) NOS [Suspect]
     Active Substance: LAPINE T-LYMPHOCYTE IMMUNE GLOBULIN
     Indication: Bone marrow conditioning regimen
     Dosage: 2 MG/KG, QD,GIVEN VIA 0.22-?M FILTER OVER 6-10 H ON DAYS -3 TO -1
     Route: 042
  8. ANTI-THYMOCYTE GLOBULIN (RABBIT) NOS [Suspect]
     Active Substance: LAPINE T-LYMPHOCYTE IMMUNE GLOBULIN
     Indication: Stem cell transplant
  9. ANTI-THYMOCYTE GLOBULIN (RABBIT) NOS [Suspect]
     Active Substance: LAPINE T-LYMPHOCYTE IMMUNE GLOBULIN
     Indication: Sickle cell anaemia
  10. THIOTEPA [Suspect]
     Active Substance: THIOTEPA
     Indication: Bone marrow conditioning regimen
     Dosage: 5 MG/KG, OVER 2 H ON DAY -7
     Route: 042
  11. THIOTEPA [Suspect]
     Active Substance: THIOTEPA
     Indication: Stem cell transplant
  12. THIOTEPA [Suspect]
     Active Substance: THIOTEPA
     Indication: Sickle cell anaemia
  13. TACROLIMUS [Suspect]
     Active Substance: TACROLIMUS
     Indication: Prophylaxis against graft versus host disease
     Dosage: 0.03 MG/KG/DAY
     Route: 042
  14. METHOTREXATE [Suspect]
     Active Substance: METHOTREXATE
     Indication: Prophylaxis against graft versus host disease
     Dosage: 5 MG/M2 ON DAYS + 1, + 3, + 6, AND +11
     Route: 042

REACTIONS (6)
  - Cytomegalovirus infection reactivation [Unknown]
  - Mucosal inflammation [Unknown]
  - Varicella zoster virus infection [Unknown]
  - Liver function test increased [Recovered/Resolved]
  - COVID-19 [Unknown]
  - Product use in unapproved indication [Unknown]
